FAERS Safety Report 22031342 (Version 1)
Quarter: 2023Q1

REPORT INFORMATION
  Report Type: Spontaneous
  Country: JP (occurrence: JP)
  Receive Date: 20230224
  Receipt Date: 20230224
  Transmission Date: 20230417
  Serious: Yes (Other)
  Sender: FDA-Public Use
  Company Number: JP-SAKK-01498517

PATIENT
  Age: 75 Year
  Sex: Female

DRUGS (5)
  1. INSULIN LISPRO [Suspect]
     Active Substance: INSULIN LISPRO
     Indication: Diabetes mellitus
     Dosage: 3 U, TID
     Route: 058
  2. INSULIN LISPRO [Suspect]
     Active Substance: INSULIN LISPRO
     Dosage: 2 U, TID
     Route: 058
  3. INSULIN GLARGINE [Concomitant]
     Active Substance: INSULIN GLARGINE
     Indication: Diabetes mellitus
     Dosage: UNK
     Route: 065
  4. INSULIN GLARGINE [Concomitant]
     Active Substance: INSULIN GLARGINE
     Dosage: INCREASED BY 1 UNIT
     Route: 065
  5. METGLUCO [Concomitant]
     Active Substance: METFORMIN HYDROCHLORIDE
     Indication: Diabetes mellitus
     Route: 048

REACTIONS (14)
  - Cerebral infarction [Unknown]
  - Foreign body in mouth [Unknown]
  - Oral pain [Unknown]
  - Physical deconditioning [Unknown]
  - Diarrhoea [Unknown]
  - Gait disturbance [Unknown]
  - Dehydration [Unknown]
  - Nausea [Unknown]
  - Blood pressure increased [Unknown]
  - Dizziness [Unknown]
  - Rash [Unknown]
  - Gastrectomy [Unknown]
  - Hyperglycaemia [Unknown]
  - Hypoglycaemia [Unknown]
